FAERS Safety Report 8182570-3 (Version None)
Quarter: 2012Q1

REPORT INFORMATION
  Report Type: 
  Country: None (occurrence: None)
  Receive Date: 20120305
  Receipt Date: 20091110
  Transmission Date: 20120608
  Serious: No
  Sender: FDA-Public Use
  Company Number: 2009BI017439

PATIENT
  Age: 37 Year
  Sex: Male

DRUGS (1)
  1. TYSABRI [Suspect]
     Indication: MULTIPLE SCLEROSIS
     Route: 042
     Dates: start: 20090504

REACTIONS (6)
  - PRURITUS GENERALISED [None]
  - BACK PAIN [None]
  - FLANK PAIN [None]
  - ANGINA PECTORIS [None]
  - URTICARIA [None]
  - FATIGUE [None]
